FAERS Safety Report 4675341-3 (Version None)
Quarter: 2005Q2

REPORT INFORMATION
  Report Type: 
  Country: None (occurrence: None)
  Receive Date: 20050527
  Receipt Date: 20050107
  Transmission Date: 20051028
  Serious: Yes (Hospitalization)
  Sender: FDA-Public Use
  Company Number: US-BRISTOL-MYERS SQUIBB COMPANY-12819264

PATIENT
  Age: 18 Year
  Sex: Female
  Weight: 63 kg

DRUGS (6)
  1. ABILIFY [Suspect]
     Indication: SCHIZOPHRENIA
     Dosage: INCREASED TO 15 MG/DAY
     Route: 048
     Dates: start: 20041026, end: 20041026
  2. ABILIFY [Suspect]
     Indication: BIPOLAR DISORDER
     Dosage: INCREASED TO 15 MG/DAY
     Route: 048
     Dates: start: 20041026, end: 20041026
  3. GEODON [Suspect]
  4. TRILEPTAL [Concomitant]
  5. LEXAPRO [Concomitant]
  6. ZYPREXA [Concomitant]

REACTIONS (1)
  - COORDINATION ABNORMAL [None]
